FAERS Safety Report 8938401 (Version 2)
Quarter: 2013Q1

REPORT INFORMATION
  Report Type: Spontaneous
  Country: US (occurrence: US)
  Receive Date: 20121202
  Receipt Date: 20130110
  Transmission Date: 20140127
  Serious: No
  Sender: FDA-Public Use
  Company Number: US-009507513-1211USA011784

PATIENT
  Sex: Female

DRUGS (3)
  1. VICTRELIS [Suspect]
     Indication: CHRONIC HEPATITIS C
     Dosage: 800 MG, 3 TIMES DAILY
     Route: 048
     Dates: start: 201204, end: 2012
  2. PEGASYS [Suspect]
  3. RIBAPAK [Suspect]

REACTIONS (2)
  - No therapeutic response [Unknown]
  - Hepatitis C RNA increased [Unknown]
